FAERS Safety Report 5441360-2 (Version None)
Quarter: 2007Q3

REPORT INFORMATION
  Report Type: 
  Country: None (occurrence: None)
  Receive Date: 20070903
  Receipt Date: 20070824
  Transmission Date: 20080115
  Serious: Yes (Other)
  Sender: FDA-Public Use
  Company Number: PHHO2007US14121

PATIENT
  Age: 45 Year
  Sex: Female
  Weight: 65.45 kg

DRUGS (6)
  1. FLUVASTATIN VS ACETAMINOPHEN VS PLACEBO [Suspect]
     Indication: PROPHYLAXIS
     Dosage: DOUBLE BLIND
     Route: 048
     Dates: start: 20070823
  2. RECLAST [Suspect]
     Indication: OSTEOPENIA
     Dosage: 5 MG, ONCE/SINGLE
     Route: 042
     Dates: start: 20070823, end: 20070823
  3. CALCIUM [Concomitant]
  4. VITAMIN D3 [Concomitant]
  5. ADDERALL XR [Concomitant]
     Indication: ATTENTION DEFICIT/HYPERACTIVITY DISORDER
  6. ALLEGRA D 24 HOUR [Concomitant]
     Indication: RHINITIS SEASONAL

REACTIONS (3)
  - BODY TEMPERATURE INCREASED [None]
  - CHEST PAIN [None]
  - DYSPNOEA [None]
